FAERS Safety Report 11864805 (Version 1)
Quarter: 2015Q4

REPORT INFORMATION
  Report Type: Spontaneous
  Country: CH (occurrence: CH)
  Receive Date: 20151223
  Receipt Date: 20151223
  Transmission Date: 20160305
  Serious: Yes (Hospitalization)
  Sender: FDA-Public Use
  Company Number: CH-TEVA-619957ISR

PATIENT
  Age: 17 Year
  Sex: Female

DRUGS (13)
  1. MIDAZOLAM [Suspect]
     Active Substance: MIDAZOLAM\MIDAZOLAM HYDROCHLORIDE
     Dosage: 1 MILLIGRAM DAILY;
     Route: 040
     Dates: start: 20151119, end: 20151119
  2. PARACETAMOL [Concomitant]
     Active Substance: ACETAMINOPHEN
     Dosage: 1000 MILLIGRAM DAILY;
     Route: 065
     Dates: start: 20151119, end: 20151119
  3. DROPERIDOL. [Concomitant]
     Active Substance: DROPERIDOL
     Route: 065
     Dates: start: 20151119, end: 20151119
  4. SEVOFLURANE. [Concomitant]
     Active Substance: SEVOFLURANE
     Route: 065
     Dates: start: 20151119, end: 20151119
  5. KETAMINE [Concomitant]
     Active Substance: KETAMINE
     Dosage: 10 MILLIGRAM DAILY;
     Route: 065
     Dates: start: 20151119, end: 20151119
  6. PROPOFOL. [Suspect]
     Active Substance: PROPOFOL
     Dosage: 170 MILLIGRAM DAILY;
     Route: 041
     Dates: start: 20151119, end: 20151119
  7. SUFENTANIL [Concomitant]
     Active Substance: SUFENTANIL
     Dosage: 15 MICROGRAM DAILY;
     Route: 065
     Dates: start: 20151119, end: 20151119
  8. ONDANSETRON [Suspect]
     Active Substance: ONDANSETRON
     Dosage: 4 MILLIGRAM DAILY;
     Route: 041
     Dates: start: 20151119, end: 20151119
  9. REMIFENTANIL [Concomitant]
     Active Substance: REMIFENTANIL
     Dosage: 100 MICROGRAM DAILY;
     Route: 065
     Dates: start: 20151119, end: 20151119
  10. TRAMADOL. [Suspect]
     Active Substance: TRAMADOL
     Dosage: 100 MILLIGRAM DAILY;
     Route: 040
     Dates: start: 20151119, end: 20151119
  11. KETOPROFEN. [Concomitant]
     Active Substance: KETOPROFEN
     Dosage: 50 MILLIGRAM DAILY;
     Route: 065
     Dates: start: 20151119, end: 20151119
  12. PREDNISONE. [Concomitant]
     Active Substance: PREDNISONE
     Dosage: 80 MILLIGRAM DAILY;
     Route: 065
     Dates: start: 20151119, end: 20151119
  13. DEXAMETHASON [Concomitant]
     Active Substance: DEXAMETHASONE
     Dosage: 8 MILLIGRAM DAILY;
     Route: 065
     Dates: start: 20151119, end: 20151119

REACTIONS (6)
  - Eye movement disorder [Recovering/Resolving]
  - Neurological symptom [Recovering/Resolving]
  - Salivary hypersecretion [Recovering/Resolving]
  - Muscle contracture [Recovering/Resolving]
  - Skin plaque [Unknown]
  - Hyperventilation [Recovering/Resolving]

NARRATIVE: CASE EVENT DATE: 20151119
